FAERS Safety Report 4685395-6 (Version None)
Quarter: 2005Q2

REPORT INFORMATION
  Report Type: 
  Country: None (occurrence: None)
  Receive Date: 20050608
  Receipt Date: 20050518
  Transmission Date: 20051028
  Serious: No
  Sender: FDA-Public Use
  Company Number: ES-GLAXOSMITHKLINE-B0382055A

PATIENT

DRUGS (1)
  1. PAROXETINE HCL [Suspect]
     Indication: DRUG USE FOR UNKNOWN INDICATION
     Route: 065

REACTIONS (2)
  - DRUG DEPENDENCE [None]
  - DRUG WITHDRAWAL SYNDROME [None]
